FAERS Safety Report 4408073-7 (Version None)
Quarter: 2004Q3

REPORT INFORMATION
  Report Type: 
  Country: None (occurrence: None)
  Receive Date: 20040721
  Receipt Date: 20040709
  Transmission Date: 20050211
  Serious: No
  Sender: FDA-Public Use
  Company Number: 04P-167-0265463-00

PATIENT
  Sex: Female

DRUGS (1)
  1. BIAXIN [Suspect]
     Dosage: UNK
     Route: 065
     Dates: start: 20040401

REACTIONS (2)
  - ABORTION INDUCED [None]
  - DRUG EXPOSURE DURING PREGNANCY [None]
